FAERS Safety Report 9049120 (Version 1)
Quarter: 2013Q1

REPORT INFORMATION
  Report Type: Spontaneous
  Country: US (occurrence: None)
  Receive Date: 20130130
  Receipt Date: 20130130
  Transmission Date: 20140127
  Serious: Yes (Other)
  Sender: FDA-Public Use
  Company Number: None

PATIENT
  Age: 64 Year
  Sex: Male
  Weight: 83.14 kg

DRUGS (7)
  1. SIROLIMUS [Suspect]
     Dosage: 4 MG QD FOR 5 DAYS.
     Route: 048
     Dates: start: 20130116, end: 20130121
  2. GABAPENTIN 600 MG [Concomitant]
  3. HYDROXYCHLOROQUINE SULFATE -INV HYDROXYCHLOROQUINE [Concomitant]
  4. METFORMIN SR 500 MG [Concomitant]
  5. ONDANSETRON 4 MG [Concomitant]
  6. SERTRALINE 25 MG NOT AVAILABLE [Concomitant]
  7. VITAMIN B COMPLEX + VIT C NO.3-VITAMIN B COMPLEX + C NO. 3 [Concomitant]

REACTIONS (2)
  - Aspartate aminotransferase increased [None]
  - Alanine aminotransferase increased [None]
